FAERS Safety Report 14741508 (Version 4)
Quarter: 2018Q2

REPORT INFORMATION
  Report Type: Spontaneous
  Country: ES (occurrence: ES)
  Receive Date: 20180410
  Receipt Date: 20180625
  Transmission Date: 20180711
  Serious: Yes (Death, Hospitalization, Other)
  Sender: FDA-Public Use
  Company Number: ES-PFIZER INC-2018144990

PATIENT
  Age: 44 Year
  Sex: Male

DRUGS (5)
  1. DORMICUM [Concomitant]
     Dosage: 7.5 MG/ 24 HOURS
  2. BENEFIX [Suspect]
     Active Substance: COAGULATION FACTOR IX RECOMBINANT HUMAN\ISOPROPYL ALCOHOL
     Indication: PROPHYLAXIS
     Dosage: 1500 IU, 3X/WEEK
     Dates: end: 20180218
  3. ADIRO [Concomitant]
     Active Substance: ASPIRIN
     Dosage: 100 MG/ 24 HOURS, 1X/DAY
  4. LORMETAZEPAM [Concomitant]
     Active Substance: LORMETAZEPAM
     Dosage: 2 MG/ 24 HOURS,1X/DAY
  5. ENALAPRIL [Concomitant]
     Active Substance: ENALAPRIL
     Dosage: 20 MG/ 24 HOURS,1X/DAY

REACTIONS (2)
  - Haemorrhage intracranial [Fatal]
  - Brain oedema [Fatal]

NARRATIVE: CASE EVENT DATE: 20180218
